FAERS Safety Report 17682597 (Version 2)
Quarter: 2020Q2

REPORT INFORMATION
  Report Type: Spontaneous
  Country: AR (occurrence: AR)
  Receive Date: 20200419
  Receipt Date: 20200519
  Transmission Date: 20200714
  Serious: Yes (Other)
  Sender: FDA-Public Use
  Company Number: AR-ALEXION PHARMACEUTICALS INC.-A202004168

PATIENT
  Age: 40 Year
  Sex: Female
  Weight: 60 kg

DRUGS (1)
  1. SOLIRIS [Suspect]
     Active Substance: ECULIZUMAB
     Indication: PAROXYSMAL NOCTURNAL HAEMOGLOBINURIA
     Dosage: 900 MG , Q2W
     Route: 042
     Dates: start: 20180221

REACTIONS (14)
  - Mean cell volume increased [Unknown]
  - Platelet count increased [Unknown]
  - Haematocrit decreased [Unknown]
  - Asthenia [Recovered/Resolved]
  - White blood cell count increased [Unknown]
  - Blood bilirubin unconjugated increased [Unknown]
  - Haptoglobin decreased [Unknown]
  - Iron deficiency [Unknown]
  - Haemoglobinuria [Unknown]
  - Reticulocyte count increased [Unknown]
  - Haemolysis [Unknown]
  - Blood lactate dehydrogenase increased [Unknown]
  - Blood bilirubin increased [Unknown]
  - Haemoglobin decreased [Unknown]

NARRATIVE: CASE EVENT DATE: 202002
